FAERS Safety Report 13854127 (Version 1)
Quarter: 2017Q3

REPORT INFORMATION
  Report Type: Spontaneous
  Country: CZ (occurrence: CZ)
  Receive Date: 20170810
  Receipt Date: 20170810
  Transmission Date: 20171127
  Serious: Yes (Hospitalization, Disabling, Other)
  Sender: FDA-Public Use
  Company Number: CZ-PFIZER INC-2017337462

PATIENT
  Sex: Female

DRUGS (13)
  1. EUTHYROX [Suspect]
     Active Substance: LEVOTHYROXINE SODIUM
     Indication: THYROID DISORDER
     Dosage: 50 UG, UNK
     Dates: start: 200204, end: 2007
  2. PANZYNORM [Suspect]
     Active Substance: PANCRELIPASE
  3. PANGROL [Suspect]
     Active Substance: PANCRELIPASE
     Indication: ABDOMINAL DISCOMFORT
     Dates: start: 2013
  4. HELICID [Suspect]
     Active Substance: OMEPRAZOLE
     Indication: GASTROINTESTINAL PAIN
     Dates: start: 201311
  5. PANCREOLAN FORTE [Suspect]
     Active Substance: DIASTASE\LIPASE\PROTEASE
  6. VERALIPRIDE [Suspect]
     Active Substance: VERALIPRIDE
  7. FRISIUM [Suspect]
     Active Substance: CLOBAZAM
  8. DALACIN [Suspect]
     Active Substance: CLINDAMYCIN
     Indication: DENTAL CARE
     Dates: start: 2012, end: 2012
  9. AMITRIPTYLIN [Suspect]
     Active Substance: AMITRIPTYLINE
     Dosage: UNK
  10. VALDOXAN [Suspect]
     Active Substance: AGOMELATINE
     Indication: IRRITABLE BOWEL SYNDROME
     Dates: start: 2013
  11. MIABENE [Concomitant]
     Indication: MENTAL DISORDER
     Dosage: UNK
  12. LETROX [Concomitant]
     Active Substance: LEVOTHYROXINE SODIUM
     Indication: THYROID DISORDER
     Dates: start: 2007
  13. PROSULPIN [Suspect]
     Active Substance: SULPIRIDE
     Indication: SOMATIC SYMPTOM DISORDER

REACTIONS (11)
  - Gastrointestinal disorder [Unknown]
  - Feeding disorder [Unknown]
  - Irritable bowel syndrome [Unknown]
  - Drug intolerance [Unknown]
  - Abnormal loss of weight [Unknown]
  - Flatulence [Unknown]
  - Lactose intolerance [Unknown]
  - Abdominal pain upper [Unknown]
  - Abdominal pain lower [Unknown]
  - Abnormal dreams [Recovered/Resolved]
  - Lactose intolerance [Unknown]

NARRATIVE: CASE EVENT DATE: 2001
